FAERS Safety Report 5678406-2 (Version None)
Quarter: 2008Q1

REPORT INFORMATION
  Report Type: 
  Country: None (occurrence: None)
  Receive Date: 20080320
  Receipt Date: 20080307
  Transmission Date: 20080703
  Serious: Yes (Death, Other)
  Sender: FDA-Public Use
  Company Number: GXKR2008US02428

PATIENT
  Age: 4 Year
  Sex: Female

DRUGS (9)
  1. PREDNISONE [Suspect]
     Indication: LANGERHANS' CELL GRANULOMATOSIS
  2. VINBLASTINE SULFATE [Suspect]
     Indication: LANGERHANS' CELL GRANULOMATOSIS
  3. ETOPOSIDE [Suspect]
     Indication: LANGERHANS' CELL GRANULOMATOSIS
  4. VINCRISTINE [Suspect]
     Indication: LANGERHANS' CELL GRANULOMATOSIS
  5. CYTARABINE [Suspect]
     Indication: LANGERHANS' CELL GRANULOMATOSIS
  6. METHOTREXATE [Suspect]
     Indication: LANGERHANS' CELL GRANULOMATOSIS
  7. MERCAPTOPURINE [Suspect]
     Indication: LANGERHANS' CELL GRANULOMATOSIS
  8. CLADRIBINE [Suspect]
     Indication: LANGERHANS' CELL GRANULOMATOSIS
  9. ASPARAGINASE(ASPARAGINASE) [Suspect]
     Indication: LANGERHANS' CELL GRANULOMATOSIS

REACTIONS (13)
  - ANAPHYLACTIC REACTION [None]
  - B-CELL LYMPHOMA [None]
  - BIOPSY LUNG ABNORMAL [None]
  - DISEASE RECURRENCE [None]
  - EPSTEIN-BARR VIRUS INFECTION [None]
  - FUNGAL INFECTION [None]
  - IMMUNE RECONSTITUTION SYNDROME [None]
  - INTERSTITIAL LUNG DISEASE [None]
  - LYMPHADENOPATHY [None]
  - LYMPHOPROLIFERATIVE DISORDER [None]
  - SINUSITIS FUNGAL [None]
  - SPLENOMEGALY [None]
  - VIRAL DNA TEST POSITIVE [None]
